FAERS Safety Report 6384818-4 (Version None)
Quarter: 2009Q4

REPORT INFORMATION
  Report Type: 
  Country: None (occurrence: None)
  Receive Date: 20091001
  Receipt Date: 20090924
  Transmission Date: 20100525
  Serious: Yes (Hospitalization)
  Sender: FDA-Public Use
  Company Number: JP-ABBOTT-09P-087-0599737-00

PATIENT
  Sex: Male

DRUGS (2)
  1. LEUPLIN SR FOR INJECTION 11.25 MG [Suspect]
     Indication: PROSTATE CANCER
     Route: 058
     Dates: start: 20081101
  2. PROSTAL [Concomitant]
     Indication: PROSTATE CANCER
     Route: 048
     Dates: start: 20081101

REACTIONS (1)
  - MUSCULAR WEAKNESS [None]
